FAERS Safety Report 7229228-2 (Version None)
Quarter: 2011Q1

REPORT INFORMATION
  Report Type: 
  Country: None (occurrence: None)
  Receive Date: 20110117
  Receipt Date: 20110104
  Transmission Date: 20110831
  Serious: Yes (Hospitalization, Other)
  Sender: FDA-Public Use
  Company Number: US-ELI_LILLY_AND_COMPANY-US201101000870

PATIENT
  Sex: Female

DRUGS (10)
  1. CYMBALTA [Suspect]
     Indication: DEPRESSION
     Dosage: 30 MG, DAILY (1/D)
  2. XANAX [Concomitant]
  3. PREMARIN [Concomitant]
  4. OMEPRAZOLE [Concomitant]
  5. LISINOPRIL [Concomitant]
  6. ALEVE [Concomitant]
  7. HYDROCHLOROTHIAZIDE [Concomitant]
  8. NORVASC [Concomitant]
  9. TRAVATAN [Concomitant]
  10. COSOPT [Concomitant]

REACTIONS (5)
  - SKIN HAEMORRHAGE [None]
  - KNEE ARTHROPLASTY [None]
  - OPEN ANGLE GLAUCOMA [None]
  - EYE DISORDER [None]
  - OCULAR HYPERTENSION [None]
